FAERS Safety Report 9939512 (Version 1)
Quarter: 2014Q1

REPORT INFORMATION
  Report Type: Spontaneous
  Country: US (occurrence: US)
  Receive Date: 20140303
  Receipt Date: 20140303
  Transmission Date: 20141002
  Serious: No
  Sender: FDA-Public Use
  Company Number: US-ABBVIE-13P-163-1035626-00

PATIENT
  Age: 50 Year
  Sex: Female

DRUGS (9)
  1. HUMIRA [Suspect]
     Indication: PSORIASIS
     Route: 058
     Dates: start: 201206
  2. HUMIRA [Suspect]
     Indication: PSORIATIC ARTHROPATHY
  3. HUMIRA [Suspect]
     Indication: PSORIASIS
  4. LAMICTAL [Concomitant]
     Indication: BIPOLAR DISORDER
  5. LAMICTAL [Concomitant]
     Indication: DEPRESSION
  6. SYMBYAX [Concomitant]
     Indication: BIPOLAR DISORDER
  7. SYMBYAX [Concomitant]
     Indication: DEPRESSION
  8. XANAX [Concomitant]
     Indication: PRODUCT USED FOR UNKNOWN INDICATION
  9. ADDERALL [Concomitant]
     Indication: PRODUCT USED FOR UNKNOWN INDICATION
     Dosage: ONCE DAILY

REACTIONS (3)
  - Tendon injury [Unknown]
  - Eczema [Not Recovered/Not Resolved]
  - Drug dose omission [Recovered/Resolved]
